FAERS Safety Report 5082787-0 (Version None)
Quarter: 2006Q3

REPORT INFORMATION
  Report Type: 
  Country: None (occurrence: None)
  Receive Date: 20060817
  Receipt Date: 20060810
  Transmission Date: 20061208
  Serious: Yes (Death)
  Sender: FDA-Public Use
  Company Number: ES-NOVOPROD-256031

PATIENT
  Sex: Female

DRUGS (1)
  1. NOVOSEVEN [Suspect]
     Indication: PERITONEAL HAEMORRHAGE
     Dosage: 2.4 MG, SINGLE

REACTIONS (1)
  - MULTI-ORGAN FAILURE [None]
